FAERS Safety Report 22078624 (Version 1)
Quarter: 2023Q1

REPORT INFORMATION
  Report Type: Spontaneous
  Country: US (occurrence: US)
  Receive Date: 20230309
  Receipt Date: 20230309
  Transmission Date: 20230417
  Serious: Yes (Hospitalization, Other)
  Sender: FDA-Public Use
  Company Number: US-SA-SAC20230307000952

PATIENT
  Age: 17 Year
  Sex: Male
  Weight: 90.71 kg

DRUGS (10)
  1. DUPIXENT [Suspect]
     Active Substance: DUPILUMAB
     Indication: Nephrotic syndrome
     Dosage: 300 MG , QOW
     Route: 058
  2. DUPIXENT [Suspect]
     Active Substance: DUPILUMAB
     Indication: Dermatitis atopic
  3. MUPIROCIN [Concomitant]
     Active Substance: MUPIROCIN
     Dosage: UNK
  4. HYDROCORTISONE [Concomitant]
     Active Substance: HYDROCORTISONE
     Dosage: UNK
  5. TRIAMCINOLONE ACETONIDE [Concomitant]
     Active Substance: TRIAMCINOLONE ACETONIDE
     Dosage: UNK
  6. CLOBETASOL PROPIONATE [Concomitant]
     Active Substance: CLOBETASOL PROPIONATE
     Dosage: UNK
  7. PROGRAF [Concomitant]
     Active Substance: TACROLIMUS
     Dosage: UNK
  8. TACROLIMUS [Concomitant]
     Active Substance: TACROLIMUS
     Dosage: UNK
  9. LACTOSE [Concomitant]
     Active Substance: LACTOSE
     Dosage: UNK
  10. DERMA SMOOTHE [Concomitant]
     Dosage: UNK

REACTIONS (2)
  - Severe cutaneous adverse reaction [Unknown]
  - Product use in unapproved indication [Unknown]

NARRATIVE: CASE EVENT DATE: 20230201
